FAERS Safety Report 4650467-9 (Version None)
Quarter: 2005Q2

REPORT INFORMATION
  Report Type: 
  Country: None (occurrence: None)
  Receive Date: 20050429
  Receipt Date: 20050421
  Transmission Date: 20051028
  Serious: Yes (Life-Threatening, Hospitalization, Other)
  Sender: FDA-Public Use
  Company Number: 2005-04-1686

PATIENT
  Age: 32 Year
  Sex: Female

DRUGS (2)
  1. PEG-INTRON [Suspect]
     Indication: HEPATITIS C
     Dosage: 40 MCG QW SUBCUTANEOUS
     Route: 058
     Dates: start: 20050308, end: 20050401
  2. REBETOL [Suspect]
     Indication: HEPATITIS C
     Dosage: 600 MG ORAL
     Route: 048
     Dates: start: 20050308, end: 20050401

REACTIONS (2)
  - BRAIN ABSCESS [None]
  - LOSS OF CONSCIOUSNESS [None]
